FAERS Safety Report 19989519 (Version 1)
Quarter: 2021Q4

REPORT INFORMATION
  Report Type: Report from Study
  Country: None (occurrence: US)
  Receive Date: 20211025
  Receipt Date: 20211025
  Transmission Date: 20220303
  Serious: Yes (Other)
  Sender: FDA-Public Use
  Company Number: US-ABBVIE-21K-163-4132994-00

PATIENT
  Sex: Male

DRUGS (1)
  1. IMBRUVICA [Interacting]
     Active Substance: IBRUTINIB
     Indication: Chronic lymphocytic leukaemia
     Route: 048
     Dates: start: 20190716, end: 20211008

REACTIONS (4)
  - Thrombotic stroke [Unknown]
  - Thrombosis [Unknown]
  - Drug interaction [Unknown]
  - Weight decreased [Unknown]
